FAERS Safety Report 9087454 (Version 4)
Quarter: 2013Q2

REPORT INFORMATION
  Report Type: Spontaneous
  Country: NL (occurrence: NL)
  Receive Date: 20130217
  Receipt Date: 20130521
  Transmission Date: 20140414
  Serious: Yes (Life-Threatening, Hospitalization, Other)
  Sender: FDA-Public Use
  Company Number: NL-TEVA-385112ISR

PATIENT
  Age: 65 Year
  Sex: Female
  Weight: 62 kg

DRUGS (2)
  1. CIPROFLOXACINE RATIOPHARM 500 MG [Suspect]
     Indication: CYSTITIS
     Dosage: 1000 MILLIGRAM DAILY;
     Route: 048
     Dates: start: 20121203, end: 20121212
  2. DIPHANTO?NE [Interacting]

REACTIONS (9)
  - Status epilepticus [Recovered/Resolved with Sequelae]
  - Drug prescribing error [Unknown]
  - Drug interaction [Unknown]
  - Convulsion [Unknown]
  - Loss of consciousness [Unknown]
  - Memory impairment [Not Recovered/Not Resolved]
  - Confusional state [Recovered/Resolved]
  - Pain [Not Recovered/Not Resolved]
  - Headache [Not Recovered/Not Resolved]
